FAERS Safety Report 9295949 (Version 1)
Quarter: 2013Q2

REPORT INFORMATION
  Report Type: Spontaneous
  Country: ZA (occurrence: ZA)
  Receive Date: 20130517
  Receipt Date: 20130517
  Transmission Date: 20140414
  Serious: Yes (Disabling)
  Sender: FDA-Public Use
  Company Number: ZA-B.I. PHARMACEUTICALS,INC./RIDGEFIELD-2013-AP-00374ZA

PATIENT
  Age: 64 Year
  Sex: Female

DRUGS (6)
  1. PRADAXA [Suspect]
     Indication: ATRIAL FIBRILLATION
     Dosage: 220 MG
     Route: 048
     Dates: start: 20130318
  2. ASPAVOR [Concomitant]
     Indication: HYPERCHOLESTEROLAEMIA
  3. PREXIM [Concomitant]
     Indication: HYPERTENSION
  4. ELTROXIN [Concomitant]
     Indication: HYPOTHYROIDISM
  5. BISOCOR [Concomitant]
     Indication: ATRIAL FIBRILLATION
     Dates: start: 20130318
  6. HEXARONE [Concomitant]
     Indication: ATRIAL FIBRILLATION
     Dates: start: 20130318

REACTIONS (2)
  - Retinal artery occlusion [Not Recovered/Not Resolved]
  - Vision blurred [Not Recovered/Not Resolved]
